FAERS Safety Report 18811818 (Version 1)
Quarter: 2021Q1

REPORT INFORMATION
  Report Type: Spontaneous
  Country: GB (occurrence: GB)
  Receive Date: 20210129
  Receipt Date: 20210129
  Transmission Date: 20210419
  Serious: Yes (Life-Threatening, Hospitalization, Disabling, Other)
  Sender: FDA-Public Use
  Company Number: GB-TEVA-2021-GB-1871794

PATIENT
  Age: 51 Year
  Sex: Male
  Weight: 92.52 kg

DRUGS (6)
  1. VENLAFAXINE [Suspect]
     Active Substance: VENLAFAXINE HYDROCHLORIDE
     Indication: DEPRESSION SUICIDAL
     Dosage: MAXIMUM DOSAGE
     Route: 048
     Dates: start: 20131215, end: 20140615
  2. IMIPRAMINE [Suspect]
     Active Substance: IMIPRAMINE
     Indication: MIXED ANXIETY AND DEPRESSIVE DISORDER
  3. MIRTAZAPINE. [Suspect]
     Active Substance: MIRTAZAPINE
     Indication: INSOMNIA
  4. LITHIUM CARBONATE. [Suspect]
     Active Substance: LITHIUM CARBONATE
     Indication: DEPRESSION SUICIDAL
     Dosage: MAXIMUM DOSAGE
     Route: 048
     Dates: start: 20140615, end: 20151215
  5. MIRTAZAPINE. [Suspect]
     Active Substance: MIRTAZAPINE
     Indication: DEPRESSION SUICIDAL
     Dosage: MAXIMUM DOSAGE
     Route: 048
     Dates: start: 20130515, end: 20131215
  6. IMIPRAMINE [Suspect]
     Active Substance: IMIPRAMINE
     Indication: BIPOLAR DISORDER
     Dosage: MAXIMUM DOSAGE
     Route: 048
     Dates: start: 20130520, end: 20170405

REACTIONS (5)
  - Akathisia [Unknown]
  - Suicidal ideation [Unknown]
  - Anxiety [Unknown]
  - Depression [Recovered/Resolved]
  - Mental impairment [Unknown]

NARRATIVE: CASE EVENT DATE: 20130523
